FAERS Safety Report 6869830-0 (Version None)
Quarter: 2010Q3

REPORT INFORMATION
  Report Type: 
  Country: None (occurrence: None)
  Receive Date: 20100722
  Receipt Date: 20070320
  Transmission Date: 20110219
  Serious: No
  Sender: FDA-Public Use
  Company Number: US-PFIZER INC-2008074253

PATIENT
  Sex: Female
  Weight: 58.181 kg

DRUGS (13)
  1. CHANTIX [Interacting]
     Indication: EX-TOBACCO USER
     Dosage: EVERYDAY
     Route: 048
     Dates: start: 20070301
  2. GEODON [Suspect]
  3. CONCERTA [Interacting]
  4. ATIVAN [Concomitant]
     Route: 048
  5. RELAFEN [Concomitant]
     Route: 048
  6. BUPRENORPHINE HCL AND NALOXONE HCL [Concomitant]
     Route: 048
  7. LAMICTAL [Concomitant]
     Route: 048
  8. CHLORZOXAZONE [Concomitant]
     Route: 048
  9. DETROL [Concomitant]
     Route: 048
  10. PROMETHAZINE [Concomitant]
     Route: 048
  11. CLONIDINE [Concomitant]
     Route: 048
  12. CYMBALTA [Concomitant]
     Route: 048
  13. HYDROXYZINE [Concomitant]
     Indication: MULTIPLE ALLERGIES
     Route: 048

REACTIONS (8)
  - DRUG INTERACTION [None]
  - FATIGUE [None]
  - INFLUENZA LIKE ILLNESS [None]
  - INSOMNIA [None]
  - MALAISE [None]
  - NAUSEA [None]
  - PAIN IN EXTREMITY [None]
  - VOMITING [None]
